FAERS Safety Report 4983432-2 (Version None)
Quarter: 2006Q2

REPORT INFORMATION
  Report Type: 
  Country: None (occurrence: None)
  Receive Date: 20060426
  Receipt Date: 20060126
  Transmission Date: 20061013
  Serious: Yes (Hospitalization, Other)
  Sender: FDA-Public Use
  Company Number: US-MERCK-0601USA03247

PATIENT
  Age: 69 Year
  Sex: Female
  Weight: 63 kg

DRUGS (7)
  1. VIOXX [Suspect]
     Indication: ARTHRITIS
     Route: 048
     Dates: start: 19990101, end: 20040901
  2. TYLENOL (CAPLET) [Concomitant]
     Route: 048
  3. FOSAMAX [Concomitant]
     Indication: BONE DISORDER
     Route: 065
  4. MOTRIN [Concomitant]
     Indication: ARTHRITIS
     Route: 065
  5. MINIPRESS [Concomitant]
     Indication: HYPERTENSION
     Route: 065
     Dates: start: 19850101, end: 20040101
  6. PLAVIX [Concomitant]
     Indication: ARTERIAL REPAIR
     Route: 065
     Dates: start: 20031101, end: 20031101
  7. PREMARIN [Concomitant]
     Indication: HORMONE REPLACEMENT THERAPY
     Route: 065
     Dates: end: 20030101

REACTIONS (3)
  - CAROTID ARTERY STENOSIS [None]
  - CEREBROVASCULAR ACCIDENT [None]
  - TENDONITIS [None]
